FAERS Safety Report 8994835 (Version 2)
Quarter: 2013Q1

REPORT INFORMATION
  Report Type: Spontaneous
  Country: US (occurrence: None)
  Receive Date: 20121221
  Receipt Date: 20121226
  Transmission Date: 20140127
  Serious: Yes (Hospitalization, Other)
  Sender: FDA-Public Use
  Company Number: JPI-P-026826

PATIENT
  Age: 25 Year
  Sex: Female
  Weight: 57.61 kg

DRUGS (3)
  1. XYREM (500 MILLIGRAM/ MILLILITERS, SOLUTION) (SODIUM OXYBATE) [Suspect]
     Indication: CATAPLEXY
     Dosage: 4.5 GM (2.25 GM, 2 IN 1 D),ORAL
     Route: 048
     Dates: start: 20120927
  2. LISDEXAMFETAMINE DIMESYLATE [Concomitant]
  3. LORAZEPAM [Concomitant]

REACTIONS (15)
  - Anxiety [None]
  - Delusion [None]
  - Suicidal ideation [None]
  - Abnormal behaviour [None]
  - Mental disorder [None]
  - Dysuria [None]
  - Nausea [None]
  - Insomnia [None]
  - Somnolence [None]
  - Pollakiuria [None]
  - Sluggishness [None]
  - Paraesthesia [None]
  - Hypoaesthesia [None]
  - Dysarthria [None]
  - Asthenia [None]
